FAERS Safety Report 24882538 (Version 1)
Quarter: 2025Q1

REPORT INFORMATION
  Report Type: Spontaneous
  Country: US (occurrence: US)
  Receive Date: 20250124
  Receipt Date: 20250124
  Transmission Date: 20250409
  Serious: Yes (Other)
  Sender: Unknown Manufacturer
  Company Number: US-MLMSERVICE-20241211-PI285521-00123-1

PATIENT
  Age: 85 Year
  Sex: Male

DRUGS (1)
  1. DOCETAXEL [Suspect]
     Active Substance: DOCETAXEL
     Indication: Prostate cancer metastatic
     Route: 042

REACTIONS (3)
  - Retinal artery occlusion [Recovering/Resolving]
  - Pupillary reflex impaired [Recovering/Resolving]
  - Optic ischaemic neuropathy [Recovering/Resolving]
